FAERS Safety Report 13008508 (Version 1)
Quarter: 2016Q4

REPORT INFORMATION
  Report Type: Report from Study
  Country: JP (occurrence: JP)
  Receive Date: 20161208
  Receipt Date: 20161208
  Transmission Date: 20170207
  Serious: Yes (Hospitalization, Other)
  Sender: FDA-Public Use
  Company Number: JP-CONCORDIA PHARMACEUTICALS INC.-E2B_00007930

PATIENT
  Age: 79 Year
  Sex: Female

DRUGS (10)
  1. MADOPAR [Concomitant]
     Active Substance: BENSERAZIDE HYDROCHLORIDE\LEVODOPA
  2. ZONISAMIDE. [Suspect]
     Active Substance: ZONISAMIDE
     Indication: DEMENTIA WITH LEWY BODIES
     Dosage: 25MG/DAY
     Route: 048
     Dates: start: 20161028, end: 20161123
  3. ZONISAMIDE. [Suspect]
     Active Substance: ZONISAMIDE
     Indication: PARKINSONISM
     Dosage: 25 MG/DAY, 50 MG/DAY OR PLACEBO
     Route: 048
     Dates: start: 20160805, end: 20161027
  4. ROZEREM [Concomitant]
     Active Substance: RAMELTEON
  5. ARICEPT [Concomitant]
     Active Substance: DONEPEZIL HYDROCHLORIDE
  6. AMLODIPINE [Concomitant]
     Active Substance: AMLODIPINE BESYLATE
  7. REFLEX [Concomitant]
     Active Substance: MIRTAZAPINE
  8. ZONISAMIDE. [Suspect]
     Active Substance: ZONISAMIDE
     Dosage: 50 MG/DAY
     Route: 048
  9. PLACEBO [Suspect]
     Active Substance: UNSPECIFIED INGREDIENT
     Dates: start: 20160715
  10. MAGMITT [Concomitant]
     Active Substance: MAGNESIUM OXIDE

REACTIONS (2)
  - Pneumonia aspiration [Not Recovered/Not Resolved]
  - Rhabdomyolysis [Not Recovered/Not Resolved]

NARRATIVE: CASE EVENT DATE: 20161122
